FAERS Safety Report 10539581 (Version 1)
Quarter: 2014Q4

REPORT INFORMATION
  Report Type: Spontaneous
  Country: US (occurrence: US)
  Receive Date: 20141023
  Receipt Date: 20141023
  Transmission Date: 20150529
  Serious: No
  Sender: FDA-Public Use
  Company Number: US-ALLERGAN-1401668US

PATIENT
  Age: 68 Year
  Sex: Female

DRUGS (5)
  1. COMBIGAN[R] [Suspect]
     Active Substance: BRIMONIDINE TARTRATE\TIMOLOL MALEATE
     Indication: GLAUCOMA
     Dosage: 2 GTT, UNK
     Route: 047
  2. LUMIGAN [Concomitant]
     Active Substance: BIMATOPROST
     Indication: GLAUCOMA
     Dosage: 2 GTT, QHS
     Route: 047
  3. ALPHAGAN P [Suspect]
     Active Substance: BRIMONIDINE TARTRATE
     Indication: GLAUCOMA
     Dosage: 2 GTT, BID
     Route: 047
  4. BISOPRL [Concomitant]
     Indication: HYPERTENSION
     Dosage: UNK, BID
  5. SIMVISTATIN [Concomitant]
     Active Substance: SIMVASTATIN
     Indication: BLOOD CHOLESTEROL

REACTIONS (6)
  - Asthenia [Recovered/Resolved]
  - Blood pressure decreased [Recovered/Resolved]
  - Sluggishness [Recovered/Resolved]
  - Inappropriate schedule of drug administration [Unknown]
  - Discomfort [Recovered/Resolved]
  - Feeling abnormal [Recovered/Resolved]
